FAERS Safety Report 8369635-8 (Version None)
Quarter: 2012Q2

REPORT INFORMATION
  Report Type: 
  Country: None (occurrence: None)
  Receive Date: 20120518
  Receipt Date: 20120517
  Transmission Date: 20120825
  Serious: Yes (Death, Other)
  Sender: FDA-Public Use
  Company Number: PHHY2012NZ042102

PATIENT
  Sex: Female

DRUGS (1)
  1. CLOZARIL [Suspect]
     Indication: SCHIZOPHRENIA
     Route: 048
     Dates: start: 19990727

REACTIONS (7)
  - HYPERKALAEMIA [None]
  - URINARY TRACT INFECTION [None]
  - SEPSIS [None]
  - TYPE 2 DIABETES MELLITUS [None]
  - HYPOTENSION [None]
  - RENAL FAILURE CHRONIC [None]
  - HYPOTHERMIA [None]
